FAERS Safety Report 9224147 (Version 2)
Quarter: 2013Q2

REPORT INFORMATION
  Report Type: Spontaneous
  Country: US (occurrence: US)
  Receive Date: 20130411
  Receipt Date: 20130529
  Transmission Date: 20140414
  Serious: No
  Sender: FDA-Public Use
  Company Number: US-PFIZER INC-2013111907

PATIENT
  Age: 55 Year
  Sex: Female
  Weight: 72.6 kg

DRUGS (6)
  1. TIKOSYN [Suspect]
     Indication: ATRIAL FIBRILLATION
     Dosage: 0.5 MG, 2X/DAY
     Dates: start: 201202
  2. LIPITOR [Concomitant]
     Indication: CARDIAC DISORDER
     Dosage: UNK
  3. WARFARIN [Concomitant]
     Indication: CARDIAC DISORDER
     Dosage: UNK
  4. ASPIRIN [Concomitant]
     Indication: CARDIAC DISORDER
     Dosage: UNK
  5. LORAZEPAM [Concomitant]
     Indication: CARDIAC DISORDER
     Dosage: UNK
  6. MIRALAX [Concomitant]
     Indication: CONSTIPATION
     Dosage: UNK

REACTIONS (2)
  - Drug ineffective [Unknown]
  - Dizziness [Unknown]
